FAERS Safety Report 8088773-0 (Version None)
Quarter: 2012Q1

REPORT INFORMATION
  Report Type: 
  Country: None (occurrence: None)
  Receive Date: 20120128
  Receipt Date: 20110527
  Transmission Date: 20120608
  Serious: No
  Sender: FDA-Public Use
  Company Number: US-ABBOTT-11P-163-0729752-00

PATIENT
  Sex: Female
  Weight: 54.026 kg

DRUGS (3)
  1. PLAQUENIL [Concomitant]
     Indication: RHEUMATOID ARTHRITIS
     Dates: start: 20110301
  2. HUMIRA [Suspect]
     Indication: RHEUMATOID ARTHRITIS
     Dates: start: 20110401
  3. BIRTH CONTROL PILL [Concomitant]
     Indication: CONTRACEPTION

REACTIONS (2)
  - FATIGUE [None]
  - DRUG INEFFECTIVE [None]
